FAERS Safety Report 13196306 (Version 1)
Quarter: 2017Q1

REPORT INFORMATION
  Report Type: Spontaneous
  Country: US (occurrence: US)
  Receive Date: 20170208
  Receipt Date: 20170208
  Transmission Date: 20170428
  Serious: No
  Sender: FDA-Public Use
  Company Number: US-PFIZER INC-2017053667

PATIENT
  Age: 14 Year
  Sex: Female
  Weight: 112 kg

DRUGS (4)
  1. SAPHRIS [Concomitant]
     Active Substance: ASENAPINE MALEATE
     Indication: ANXIETY
     Dosage: 2.5 MG, 1X/DAY (BEFORE BED)
     Dates: start: 201611
  2. PRISTIQ EXTENDED-RELEASE [Suspect]
     Active Substance: DESVENLAFAXINE SUCCINATE
     Dosage: 25 MG, 1X/DAY
     Route: 048
     Dates: start: 201608
  3. SAPHRIS [Concomitant]
     Active Substance: ASENAPINE MALEATE
     Indication: OBSESSIVE-COMPULSIVE DISORDER
  4. PRISTIQ EXTENDED-RELEASE [Suspect]
     Active Substance: DESVENLAFAXINE SUCCINATE
     Dosage: 50 MG, UNK
     Route: 048

REACTIONS (2)
  - Drug administered to patient of inappropriate age [Not Recovered/Not Resolved]
  - Headache [Recovering/Resolving]

NARRATIVE: CASE EVENT DATE: 2016
